FAERS Safety Report 8488225-X (Version None)
Quarter: 2012Q3

REPORT INFORMATION
  Report Type: 
  Country: None (occurrence: None)
  Receive Date: 20120705
  Receipt Date: 20120626
  Transmission Date: 20120928
  Serious: Yes (Hospitalization)
  Sender: FDA-Public Use
  Company Number: JP-B.I. PHARMACEUTICALS,INC./RIDGEFIELD-2012-BP-13700NB

PATIENT
  Age: 69 Year
  Sex: Male

DRUGS (23)
  1. OLMESARTAN MEDOXOMIL [Concomitant]
     Indication: HYPERTENSION
     Dosage: 40 MG
     Route: 048
  2. LENDORMIN D [Concomitant]
     Dosage: 0.25 MG
     Route: 048
  3. TAMSULOSIN HCL [Concomitant]
     Dosage: 0.2 MG
     Route: 048
  4. TRAZENTA [Suspect]
     Indication: DIABETES MELLITUS
     Dosage: 5 MG
     Route: 048
     Dates: start: 20120209
  5. DIART [Concomitant]
     Indication: HYPERTENSION
     Dosage: 60 MG
     Route: 048
  6. CARVEDILOL [Concomitant]
     Dosage: 20 MG
     Route: 048
  7. ALLOPURINOL [Concomitant]
     Route: 048
  8. ADALAT [Suspect]
     Indication: HYPERTENSION
     Dosage: 60 MG
     Route: 048
     Dates: end: 20120518
  9. FERROUS CITRATE [Concomitant]
     Dosage: 100 MG
     Route: 048
  10. LASIX [Concomitant]
     Route: 048
  11. PURSENNID [Concomitant]
     Route: 048
  12. LANSOPRAZOLE [Concomitant]
     Route: 048
  13. NOVORAPID 30 MIX [Concomitant]
     Route: 065
  14. ALOSENN [Concomitant]
     Dosage: 2.5 G
     Route: 048
  15. UBRETID [Concomitant]
     Dosage: 5 MG
     Route: 048
  16. FAMOTIDINE [Concomitant]
     Dosage: 20 MG
     Route: 048
  17. DOXAZOSIN MESYLATE [Suspect]
     Indication: HYPERTENSION
     Dosage: 6 MG
     Route: 048
  18. BETHANECHOL CHLORIDE [Concomitant]
     Dosage: 0.6 G
     Route: 048
  19. INDAPAMIDE [Concomitant]
     Route: 048
  20. ARGAMATE [Concomitant]
     Dosage: 50 G
     Route: 048
  21. ASPIRIN [Concomitant]
     Dosage: 100 MG
     Route: 048
  22. LIVALO [Concomitant]
     Dosage: 2 MG
     Route: 048
  23. FEBURIC [Concomitant]
     Indication: GOUT
     Dosage: 10 MG
     Route: 048

REACTIONS (2)
  - BLOOD PRESSURE DECREASED [None]
  - DIZZINESS [None]
